FAERS Safety Report 9278705 (Version 4)
Quarter: 2015Q2

REPORT INFORMATION
  Report Type: Spontaneous
  Country: US (occurrence: US)
  Receive Date: 20130508
  Receipt Date: 20150515
  Transmission Date: 20150821
  Serious: Yes (Disabling)
  Sender: FDA-Public Use
  Company Number: US-009507513-1305USA001655

PATIENT
  Sex: Male

DRUGS (2)
  1. PROPECIA [Suspect]
     Active Substance: FINASTERIDE
     Dosage: UNK
     Route: 048
     Dates: start: 1989, end: 1992
  2. PROPECIA [Suspect]
     Active Substance: FINASTERIDE
     Indication: ALOPECIA
     Dosage: UNK
     Route: 048
     Dates: start: 2003, end: 2008

REACTIONS (14)
  - Essential hypertension [Unknown]
  - Electrocardiogram T wave inversion [Unknown]
  - Erectile dysfunction [Unknown]
  - Coronary artery disease [Unknown]
  - Sexual dysfunction [Not Recovered/Not Resolved]
  - Hand fracture [Unknown]
  - Fatigue [Unknown]
  - Depression [Not Recovered/Not Resolved]
  - Sinus bradycardia [Unknown]
  - Electrocardiogram ST-T change [Unknown]
  - Cognitive disorder [Not Recovered/Not Resolved]
  - Blood cholesterol increased [Unknown]
  - Anxiety [Not Recovered/Not Resolved]
  - Electrocardiogram QRS complex abnormal [Unknown]

NARRATIVE: CASE EVENT DATE: 20101006
